FAERS Safety Report 8202776-4 (Version None)
Quarter: 2012Q1

REPORT INFORMATION
  Report Type: 
  Country: None (occurrence: None)
  Receive Date: 20120312
  Receipt Date: 20120312
  Transmission Date: 20120608
  Serious: Yes (Other)
  Sender: FDA-Public Use
  Company Number: None

PATIENT
  Age: 26 Year
  Sex: Male
  Weight: 74.842 kg

DRUGS (2)
  1. ADDERALL XR 10 [Concomitant]
     Dosage: 15MG
     Route: 048
  2. NASAL DECONGESTANT PE [Suspect]
     Dosage: 10MG
     Route: 048

REACTIONS (13)
  - PANIC REACTION [None]
  - MORBID THOUGHTS [None]
  - DRUG INTERACTION [None]
  - EMOTIONAL DISORDER [None]
  - DIZZINESS EXERTIONAL [None]
  - NAUSEA [None]
  - ANGER [None]
  - CONFUSIONAL STATE [None]
  - ENERGY INCREASED [None]
  - THINKING ABNORMAL [None]
  - PERIPHERAL COLDNESS [None]
  - DEPRESSION [None]
  - SLEEP DISORDER DUE TO GENERAL MEDICAL CONDITION, INSOMNIA TYPE [None]
